FAERS Safety Report 6562328-9 (Version None)
Quarter: 2010Q1

REPORT INFORMATION
  Report Type: 
  Country: None (occurrence: None)
  Receive Date: 20100130
  Receipt Date: 20091102
  Transmission Date: 20100710
  Serious: No
  Sender: FDA-Public Use
  Company Number: US-ABBOTT-09P-163-0606424-00

PATIENT
  Sex: Male
  Weight: 86.26 kg

DRUGS (3)
  1. HUMIRA [Suspect]
     Indication: COLITIS ULCERATIVE
     Route: 058
     Dates: start: 20090701
  2. MERCAPTOPURINE [Concomitant]
     Indication: COLITIS ULCERATIVE
  3. XANAX [Concomitant]
     Indication: INSOMNIA

REACTIONS (1)
  - ACNE [None]
